FAERS Safety Report 7406052 (Version 2)
Quarter: 2012Q4

REPORT INFORMATION
  Report Type: Report from Study
  Country: JP (occurrence: JP)
  Receive Date: 20100601
  Receipt Date: 20120907
  Transmission Date: 20130627
  Serious: Yes (Other)
  Sender: FDA-Public Use
  Company Number: JP-PFIZER INC-2010066817

PATIENT
  Age: 75 Year
  Sex: Female
  Weight: 41 kg

DRUGS (15)
  1. CAMPTO [Suspect]
     Indication: COLORECTAL CANCER
     Dosage: 120 mg, 1x/day
     Route: 041
     Dates: start: 20091208, end: 20091208
  2. CAMPTO [Suspect]
     Dosage: 120 mg, 1x/day
     Route: 041
     Dates: start: 20091222, end: 20091222
  3. CAMPTO [Suspect]
     Dosage: 120 mg, 1x/day
     Route: 041
     Dates: start: 20100105, end: 20100105
  4. CAMPTO [Suspect]
     Dosage: 120 mg, 1x/day
     Route: 041
     Dates: start: 20100119, end: 20100119
  5. CAMPTO [Suspect]
     Dosage: 120 mg, 1x/day
     Route: 041
     Dates: start: 20120202, end: 20120202
  6. CAMPTO [Suspect]
     Dosage: 120 mg, 1x/day
     Route: 041
     Dates: start: 20100216, end: 20100216
  7. CAMPTO [Suspect]
     Dosage: 120 mg, 1x/day
     Route: 041
     Dates: start: 20100302, end: 20100302
  8. CAMPTO [Suspect]
     Dosage: 120 mg, 1x/day
     Route: 041
     Dates: start: 20100316, end: 20100316
  9. CAMPTO [Suspect]
     Dosage: 120 mg, 1x/day
     Route: 041
     Dates: start: 20120330, end: 20120330
  10. CAMPTO [Suspect]
     Dosage: 120 mg, 1x/day
     Route: 041
     Dates: start: 20100413, end: 20100413
  11. CALCIUM LEVOFOLINATE [Concomitant]
     Indication: COLORECTAL CANCER
     Dosage: 250 mg/body (196.9 mg/m2)
     Route: 041
     Dates: start: 20091208, end: 20100413
  12. 5-FU [Concomitant]
     Indication: COLORECTAL CANCER
     Dosage: 500 mg/body (393.7 mg/m2)
     Route: 040
     Dates: start: 20091208, end: 20100413
  13. 5-FU [Concomitant]
     Dosage: 3000mg/body/d1-2 (2362.2 mg/m2/d1-2)
     Route: 041
     Dates: start: 20091208, end: 20100413
  14. HIRUDOID [Concomitant]
     Dosage: UNK
     Dates: start: 20100120
  15. WHITE SOFT PARAFFIN [Concomitant]
     Dosage: UNK
     Dates: start: 20100120

REACTIONS (1)
  - Palmar-plantar erythrodysaesthesia syndrome [Recovering/Resolving]
